FAERS Safety Report 8075614-0 (Version None)
Quarter: 2012Q1

REPORT INFORMATION
  Report Type: 
  Country: None (occurrence: None)
  Receive Date: 20120127
  Receipt Date: 20110221
  Transmission Date: 20120608
  Serious: No
  Sender: FDA-Public Use
  Company Number: US-GLAXOSMITHKLINE-A0914670A

PATIENT
  Age: 8 Year
  Sex: Male

DRUGS (6)
  1. METHOTREXATE [Concomitant]
  2. ONDANSETRON HCL [Suspect]
     Indication: ABDOMINAL PAIN UPPER
     Route: 048
     Dates: start: 20110215
  3. VINCRISTINE [Concomitant]
  4. MEPRON [Suspect]
     Indication: RESPIRATORY DISORDER
     Dosage: 825ML PER DAY
     Route: 048
     Dates: start: 20110214
  5. DECADRON [Concomitant]
  6. MERCAPTOPURINE [Concomitant]

REACTIONS (5)
  - DIZZINESS [None]
  - ABDOMINAL PAIN UPPER [None]
  - DECREASED APPETITE [None]
  - DRUG INEFFECTIVE [None]
  - VOMITING [None]
